FAERS Safety Report 13182265 (Version 3)
Quarter: 2017Q1

REPORT INFORMATION
  Report Type: Report from Study
  Country: None (occurrence: JP)
  Receive Date: 20170202
  Receipt Date: 20170223
  Transmission Date: 20170428
  Serious: Yes (Other)
  Sender: FDA-Public Use
  Company Number: JP-ABBVIE-17P-087-1859058-00

PATIENT
  Age: 49 Year
  Sex: Male
  Weight: 61 kg

DRUGS (19)
  1. DUODOPA [Suspect]
     Active Substance: CARBIDOPA\LEVODOPA
     Dosage: 7.5 ML MORNING, 3.5 ML FOR 16 HRS CONTINUOUS, 1.5 ML 4 TIMES AS ADDITIONAL
     Route: 050
     Dates: start: 20161206, end: 20161227
  2. DUODOPA [Suspect]
     Active Substance: CARBIDOPA\LEVODOPA
     Dosage: 5 ML IN MORNING, 2.9 ML FOR 13 HRS CONTINUOUS, 1.5 ML ONCE ADDITIONAL ADMINISTRATION
     Route: 050
     Dates: start: 20161027, end: 20161027
  3. LEVODOPA-CARBIDOPA [Concomitant]
     Active Substance: CARBIDOPA\LEVODOPA
     Indication: PARKINSON^S DISEASE
     Dosage: PRN AT NIGHT WHILE DUODOPA WAS OFF
     Route: 048
     Dates: start: 200806
  4. DUODOPA [Suspect]
     Active Substance: CARBIDOPA\LEVODOPA
     Indication: PARKINSON^S DISEASE
     Dosage: 8 ML IN THE MORNING, 2.7 ML FOR 13 HOURS CONTINUOUS ADMINISTRATION
     Route: 050
     Dates: start: 20161020, end: 20161020
  5. CLONAZEPAM. [Concomitant]
     Active Substance: CLONAZEPAM
     Dates: start: 20161206
  6. PYRIDOXAL PHOSPHATE [Concomitant]
     Active Substance: PYRIDOXAL PHOSPHATE
     Indication: PRODUCT USED FOR UNKNOWN INDICATION
     Route: 048
     Dates: start: 20161101
  7. CLONAZEPAM. [Concomitant]
     Active Substance: CLONAZEPAM
     Indication: PRODUCT USED FOR UNKNOWN INDICATION
     Route: 048
     Dates: end: 20161105
  8. ROTIGOTINE [Concomitant]
     Active Substance: ROTIGOTINE
     Indication: PRODUCT USED FOR UNKNOWN INDICATION
     Route: 062
  9. SUVOREXANT. [Concomitant]
     Active Substance: SUVOREXANT
     Indication: PRODUCT USED FOR UNKNOWN INDICATION
     Route: 048
     Dates: end: 20161106
  10. DUODOPA [Suspect]
     Active Substance: CARBIDOPA\LEVODOPA
     Dosage: 8 ML IN MORNING, 3.1 ML FOR 16 HRS CONTINUOUS, 1.5 ML 5 TIMES AS ADDITIONAL
     Route: 050
     Dates: start: 20161111, end: 20161122
  11. DUODOPA [Suspect]
     Active Substance: CARBIDOPA\LEVODOPA
     Dosage: 7.5 ML MORNING, 3.5 ML FOR 16 HRS AS CONTINUOUS, 2.0 ML 4 TIMES AS ADDITIONAL
     Route: 050
     Dates: start: 20161227
  12. ZOLPIDEM TARTRATE. [Concomitant]
     Active Substance: ZOLPIDEM TARTRATE
     Dates: start: 20161122
  13. DUODOPA [Suspect]
     Active Substance: CARBIDOPA\LEVODOPA
     Dosage: 7 ML IN MORNING, 2.9 ML FOR 13 HRS CONTINUOUS, 2 ML ONCE ADDITIONAL ADMINISTRATION
     Route: 050
     Dates: start: 20161026, end: 20161027
  14. DUODOPA [Suspect]
     Active Substance: CARBIDOPA\LEVODOPA
     Dosage: 8 ML IN MORNING, 2.9 ML FOR 16 HRS CONTINUOUS, 1.5 ML 5 TIMES AS ADDITIONAL
     Route: 050
     Dates: start: 20161027, end: 20161111
  15. DUODOPA [Suspect]
     Active Substance: CARBIDOPA\LEVODOPA
     Dosage: 8 ML MORNING, 3.3 ML FOR 16 HRS AS CONTINUOUS, 1.5 ML 5 TIMES AS ADDITIONAL
     Route: 050
     Dates: start: 20161122, end: 20161206
  16. FLUNITRAZEPAM [Concomitant]
     Active Substance: FLUNITRAZEPAM
     Indication: PRODUCT USED FOR UNKNOWN INDICATION
     Route: 048
     Dates: start: 20161107
  17. DUODOPA [Suspect]
     Active Substance: CARBIDOPA\LEVODOPA
     Dosage: 8 ML MORNING, 2.9 ML FOR 13 HRS AS CONTINUOUS ADMINISTRATION
     Route: 050
     Dates: start: 20161021, end: 20161026
  18. ZOLPIDEM TARTRATE. [Concomitant]
     Active Substance: ZOLPIDEM TARTRATE
     Indication: PRODUCT USED FOR UNKNOWN INDICATION
     Route: 048
     Dates: end: 20161121
  19. WHITE PETROLATUM [Concomitant]
     Active Substance: PETROLATUM
     Indication: PROPHYLAXIS

REACTIONS (3)
  - Drug effect incomplete [Unknown]
  - Dopamine dysregulation syndrome [Recovered/Resolved]
  - Dyskinesia [Recovered/Resolved]

NARRATIVE: CASE EVENT DATE: 20161020
